FAERS Safety Report 8823322 (Version 1)
Quarter: 2012Q4

REPORT INFORMATION
  Report Type: Report from Study
  Country: US (occurrence: US)
  Receive Date: 20121003
  Receipt Date: 20121003
  Transmission Date: 20130627
  Serious: Yes (Hospitalization)
  Sender: FDA-Public Use
  Company Number: US-ROCHE-1080391

PATIENT
  Age: 61 Year
  Sex: Female
  Weight: 80 kg

DRUGS (4)
  1. PEGASYS [Suspect]
     Indication: HEPATITIS C
     Route: 058
     Dates: start: 20111202
  2. COPEGUS [Suspect]
     Indication: HEPATITIS C
     Route: 048
     Dates: start: 20111202
  3. UNSPECIFIED INGREDIENT [Suspect]
     Indication: HEPATITIS C
     Route: 048
     Dates: start: 20120116
  4. UNSPECIFIED INGREDIENT [Suspect]
     Indication: HEPATITIS C
     Route: 048
     Dates: start: 20120116

REACTIONS (4)
  - Pyrexia [Recovered/Resolved]
  - Urinary tract infection staphylococcal [Recovered/Resolved]
  - Clostridium difficile colitis [Recovered/Resolved]
  - Staphylococcal infection [Recovered/Resolved]
